FAERS Safety Report 4871560-1 (Version None)
Quarter: 2006Q1

REPORT INFORMATION
  Report Type: 
  Country: None (occurrence: None)
  Receive Date: 20060104
  Receipt Date: 20040520
  Transmission Date: 20060701
  Serious: Yes (Life-Threatening, Hospitalization)
  Sender: FDA-Public Use
  Company Number: US-AMGEN-US077416

PATIENT
  Sex: Female
  Weight: 65.4 kg

DRUGS (8)
  1. ENBREL [Suspect]
     Indication: RHEUMATOID ARTHRITIS
     Route: 058
     Dates: start: 20021220, end: 20030611
  2. MEDROL [Suspect]
  3. METHOTREXATE [Suspect]
     Dates: start: 20020211, end: 20030611
  4. PLAQUENIL [Concomitant]
     Route: 048
     Dates: start: 19900101, end: 20040211
  5. LEVOTHYROXINE SODIUM [Concomitant]
     Route: 048
  6. FOLIC ACID [Concomitant]
     Dates: start: 20020211, end: 20030611
  7. VIOXX [Concomitant]
     Route: 048
  8. COLACE [Concomitant]
     Route: 048

REACTIONS (14)
  - ANOREXIA [None]
  - ARTHRITIS BACTERIAL [None]
  - CONVULSION [None]
  - DEEP VEIN THROMBOSIS [None]
  - EXTRADURAL HAEMATOMA [None]
  - HAEMATOCRIT DECREASED [None]
  - HYPERTENSIVE CRISIS [None]
  - INTERVERTEBRAL DISCITIS [None]
  - MUSCLE ABSCESS [None]
  - MYOCARDIAL INFARCTION [None]
  - NAUSEA [None]
  - STAPHYLOCOCCAL ABSCESS [None]
  - STAPHYLOCOCCAL SEPSIS [None]
  - WEIGHT DECREASED [None]
